FAERS Safety Report 25999144 (Version 1)
Quarter: 2025Q4

REPORT INFORMATION
  Report Type: Spontaneous
  Country: CA (occurrence: CA)
  Receive Date: 20251105
  Receipt Date: 20251105
  Transmission Date: 20260117
  Serious: Yes (Hospitalization, Other)
  Sender: ALEXION PHARMACEUTICALS
  Company Number: CA-HALEON-2270520

PATIENT
  Age: 68 Year
  Sex: Male

DRUGS (1)
  1. NEXIUM [Suspect]
     Active Substance: ESOMEPRAZOLE MAGNESIUM
     Indication: Dyspepsia
     Dosage: UNK
     Route: 065

REACTIONS (4)
  - Asthenia [Recovering/Resolving]
  - Hypoparathyroidism [Recovering/Resolving]
  - Hypocalcaemia [Recovering/Resolving]
  - Blood magnesium decreased [Recovering/Resolving]
